FAERS Safety Report 4723209-6 (Version None)
Quarter: 2005Q3

REPORT INFORMATION
  Report Type: 
  Country: None (occurrence: None)
  Receive Date: 20050720
  Receipt Date: 20050706
  Transmission Date: 20060218
  Serious: Yes (Other)
  Sender: FDA-Public Use
  Company Number: 2005-128296-NL

PATIENT
  Age: 17 Year
  Sex: Female
  Weight: 68 kg

DRUGS (1)
  1. NUVARING [Suspect]
     Indication: DYSMENORRHOEA
     Dosage: VAGINAL
     Route: 067
     Dates: start: 20050508, end: 20050509

REACTIONS (13)
  - ACCIDENTAL OVERDOSE [None]
  - COLD SWEAT [None]
  - FACE INJURY [None]
  - FALL [None]
  - FEELING HOT AND COLD [None]
  - HYPOTONIA [None]
  - LIMB INJURY [None]
  - MALAISE [None]
  - NAUSEA [None]
  - PAIN IN EXTREMITY [None]
  - SYNCOPE [None]
  - TOOTH FRACTURE [None]
  - VOMITING [None]
